FAERS Safety Report 5262402-3 (Version None)
Quarter: 2007Q1

REPORT INFORMATION
  Report Type: 
  Country: None (occurrence: None)
  Receive Date: 20070309
  Receipt Date: 20070309
  Transmission Date: 20070707
  Serious: Yes (Life-Threatening, Hospitalization)
  Sender: FDA-Public Use
  Company Number: None

PATIENT
  Sex: Female

DRUGS (3)
  1. ATENOLOL [Suspect]
     Indication: BLOOD PRESSURE
     Dosage: 50MG ONCE DAILY PO
     Route: 048
     Dates: start: 20061201, end: 20061207
  2. ONDANSETRON [Suspect]
     Indication: NAUSEA
     Dosage: 8MG Q8H IV
     Route: 042
     Dates: start: 20061201, end: 20061208
  3. ONDANSETRON [Suspect]
     Indication: VOMITING
     Dosage: 8MG Q8H IV
     Route: 042
     Dates: start: 20061201, end: 20061208

REACTIONS (1)
  - BRADYCARDIA [None]
